FAERS Safety Report 8940206 (Version 2)
Quarter: 2012Q4

REPORT INFORMATION
  Report Type: Report from Study
  Country: KR (occurrence: KR)
  Receive Date: 20121130
  Receipt Date: 20121213
  Transmission Date: 20130627
  Serious: Yes (Hospitalization)
  Sender: FDA-Public Use
  Company Number: KR-ABBOTT-12P-090-1013692-00

PATIENT
  Age: 38 Year
  Sex: Male
  Weight: 55 kg

DRUGS (5)
  1. KALETRA [Suspect]
     Indication: HIV INFECTION
     Dosage: 400/100 mg
     Route: 048
     Dates: start: 20100820
  2. 3TC [Concomitant]
     Indication: HIV INFECTION
     Dosage: 300mg daily
     Dates: start: 20100626
  3. ABACAVIR [Concomitant]
     Indication: HIV INFECTION
     Dosage: 600mg daily
     Dates: start: 20100626
  4. KANAMYCIN SULFATE [Concomitant]
     Indication: PULMONARY TUBERCULOSIS
     Dosage: 1g daily
     Route: 030
     Dates: start: 2010, end: 20110616
  5. AMOXICILLIN [Concomitant]
     Indication: LYMPH NODE TUBERCULOSIS
     Dosage: 1g daily
     Route: 048
     Dates: start: 2010, end: 20110616

REACTIONS (7)
  - Herpes zoster [Recovered/Resolved]
  - Nausea [Not Recovered/Not Resolved]
  - Bilirubin conjugated increased [Recovered/Resolved]
  - White blood cell count increased [Recovered/Resolved]
  - Haemoglobin decreased [Recovered/Resolved]
  - Blister [Unknown]
  - Pyrexia [Unknown]
